FAERS Safety Report 18435757 (Version 1)
Quarter: 2020Q4

REPORT INFORMATION
  Report Type: Spontaneous
  Country: US (occurrence: US)
  Receive Date: 20201028
  Receipt Date: 20201028
  Transmission Date: 20210114
  Serious: Yes (Hospitalization)
  Sender: FDA-Public Use
  Company Number: None

PATIENT
  Age: 57 Year
  Sex: Male

DRUGS (3)
  1. SYNTHROID [Concomitant]
     Active Substance: LEVOTHYROXINE SODIUM
  2. ANDROGEN [Concomitant]
     Active Substance: UNSPECIFIED INGREDIENT
  3. NORDITROPIN [Suspect]
     Active Substance: SOMATROPIN
     Indication: HYPOTHALAMO-PITUITARY DISORDER
     Route: 058
     Dates: start: 201710

REACTIONS (3)
  - Arterial rupture [None]
  - Wrist fracture [None]
  - Road traffic accident [None]

NARRATIVE: CASE EVENT DATE: 20201015
